FAERS Safety Report 19282194 (Version 4)
Quarter: 2021Q3

REPORT INFORMATION
  Report Type: Report from Study
  Country: JP (occurrence: JP)
  Receive Date: 20210521
  Receipt Date: 20210715
  Transmission Date: 20211014
  Serious: Yes (Death, Hospitalization, Other)
  Sender: FDA-Public Use
  Company Number: JP-TAKEDA-2021TJP024892

PATIENT
  Age: 87 Year
  Sex: Male
  Weight: 41.8 kg

DRUGS (4)
  1. MESALAZINE [Concomitant]
     Active Substance: MESALAMINE
     Dosage: UNK
     Route: 065
     Dates: end: 20200714
  2. VEDOLIZUMAB [Suspect]
     Active Substance: VEDOLIZUMAB
     Dosage: 300 MILLIGRAM
     Route: 050
     Dates: start: 20200311, end: 20200311
  3. VEDOLIZUMAB [Suspect]
     Active Substance: VEDOLIZUMAB
     Dosage: 300 MILLIGRAM
     Route: 050
     Dates: start: 20200528, end: 20200528
  4. VEDOLIZUMAB [Suspect]
     Active Substance: VEDOLIZUMAB
     Indication: COLITIS ULCERATIVE
     Dosage: 300 MILLIGRAM
     Route: 050
     Dates: start: 20190619, end: 20200115

REACTIONS (2)
  - Pneumothorax [Recovered/Resolved with Sequelae]
  - Pneumonia aspiration [Fatal]

NARRATIVE: CASE EVENT DATE: 20200508
